FAERS Safety Report 6671988-3 (Version None)
Quarter: 2010Q2

REPORT INFORMATION
  Report Type: 
  Country: None (occurrence: None)
  Receive Date: 20100405
  Receipt Date: 20100323
  Transmission Date: 20101027
  Serious: Yes (Hospitalization)
  Sender: FDA-Public Use
  Company Number: 1-21818100

PATIENT
  Age: 55 Year
  Sex: Male
  Weight: 86.1834 kg

DRUGS (2)
  1. FENTANYL [Suspect]
     Indication: CANCER PAIN
     Dosage: 200 MCG/HR, Q 48 HRS, TRANSDERMAL
     Route: 062
     Dates: start: 20090301, end: 20100320
  2. FENTANYL [Suspect]
     Indication: CROHN'S DISEASE
     Dosage: 200 MCG/HR, Q 48 HRS, TRANSDERMAL
     Route: 062
     Dates: start: 20090301, end: 20100320

REACTIONS (9)
  - APPLICATION SITE BLEEDING [None]
  - APPLICATION SITE MASS [None]
  - APPLICATION SITE PUSTULES [None]
  - BLOOD COUNT ABNORMAL [None]
  - DRUG INEFFECTIVE [None]
  - HYPERSENSITIVITY [None]
  - LOSS OF CONSCIOUSNESS [None]
  - SENSATION OF HEAVINESS [None]
  - SKIN EXFOLIATION [None]
